FAERS Safety Report 7748447-X (Version None)
Quarter: 2011Q3

REPORT INFORMATION
  Report Type: 
  Country: None (occurrence: None)
  Receive Date: 20110914
  Receipt Date: 20110906
  Transmission Date: 20111222
  Serious: Yes (Hospitalization)
  Sender: FDA-Public Use
  Company Number: US-BIOGENIDEC-2011BI027347

PATIENT
  Age: 49 Year
  Sex: Female

DRUGS (3)
  1. TYSABRI [Suspect]
     Indication: MULTIPLE SCLEROSIS
     Route: 042
     Dates: start: 20090930
  2. TYSABRI [Suspect]
     Route: 042
     Dates: start: 20061221, end: 20080529
  3. TYSABRI [Suspect]
     Route: 042
     Dates: start: 20050117

REACTIONS (3)
  - RENAL FAILURE [None]
  - OPTIC NERVE OPERATION [None]
  - HYPOTENSION [None]
